FAERS Safety Report 10370677 (Version 1)
Quarter: 2014Q1

REPORT INFORMATION
  Report Type: Spontaneous
  Country: US (occurrence: None)
  Receive Date: 20140306
  Receipt Date: 20140306
  Transmission Date: 20141002
  Serious: Yes (Other)
  Sender: FDA-Public Use
  Company Number: 163-21880-13071537

PATIENT
  Age: 49 Year
  Sex: Male
  Weight: 136.1 kg

DRUGS (17)
  1. REVLIMID (LENALIDOMIDE) (CAPSULES) [Suspect]
     Indication: PLASMA CELL MYELOMA
     Route: 048
  2. LOSARTAN POTASSIUM (LOSARTAN POTASSIUM) [Concomitant]
  3. COLYTE WITH FLAVOR PACKS [Concomitant]
  4. PEG 3350 AND ELECTROLYTES SOLUTION (COLYTE ^REED^) [Concomitant]
  5. MULTIVITAMINS (MULTIVITAMINS) (CAPSULES) [Concomitant]
  6. CIALIS (TADALAFIL) (TABLETS) [Concomitant]
  7. AMLODIPINE BESYLATE (AMLODIPINE BESILATE) (TABLETS) [Concomitant]
  8. SOTALOL (SOTALOL) (TABLETS) [Concomitant]
  9. LEVOFLOXACIN (LEVOFLOXACIN) (TABLETS) [Concomitant]
  10. DOXYCYCLINE HYCLATE (DOXYCYCLINE HYCLATE) (CAPSULES) [Concomitant]
  11. TRIAMCINIOLONE (TRIAMCINOLONE) (CREAM) [Concomitant]
  12. OMEPRAZOLE (OMEPRAZOLE) (CAPSULES) [Concomitant]
  13. HYDROCODONE/ACETAMINOPHEN (REMEDEINE) [Concomitant]
  14. HYDROMORPHONE (HYDROMORPHONE) (TABLETS) [Concomitant]
  15. OXYCONTIN (OXYCODONE HYDROCHLORIDE) (TABLETS) [Concomitant]
  16. OXYCODONE HCL (OXYCODONE HYDROCHLORIDE) (CAPSULES) [Concomitant]
  17. CRESTOR (ROSUVASTATIN) (TABLETS) [Concomitant]

REACTIONS (2)
  - Thrombosis [None]
  - Pulmonary embolism [None]
